FAERS Safety Report 25750483 (Version 1)
Quarter: 2025Q3

REPORT INFORMATION
  Report Type: Spontaneous
  Country: CN (occurrence: CN)
  Receive Date: 20250902
  Receipt Date: 20250902
  Transmission Date: 20251021
  Serious: Yes (Hospitalization, Other)
  Sender: NOVARTIS
  Company Number: CN-002147023-NVSC2025CN132623

PATIENT
  Age: 58 Year
  Sex: Female
  Weight: 60 kg

DRUGS (1)
  1. KISQALI [Suspect]
     Active Substance: RIBOCICLIB SUCCINATE
     Indication: Breast cancer in situ
     Dosage: 3 DOSAGE FORM, QD (TAKING FOR 21 DAYS AND STOPPING FOR 7 DAYS)
     Route: 048
     Dates: start: 20250725, end: 20250808

REACTIONS (6)
  - Palpitations [Recovering/Resolving]
  - Chest pain [Recovering/Resolving]
  - Fatigue [Recovering/Resolving]
  - Dyspnoea [Recovering/Resolving]
  - Electrocardiogram QT prolonged [Recovering/Resolving]
  - Hypersensitivity [Recovering/Resolving]

NARRATIVE: CASE EVENT DATE: 20250808
